FAERS Safety Report 4948799-X (Version None)
Quarter: 2006Q1

REPORT INFORMATION
  Report Type: 
  Country: None (occurrence: None)
  Receive Date: 20060315
  Receipt Date: 20060308
  Transmission Date: 20060701
  Serious: Yes (Other)
  Sender: FDA-Public Use
  Company Number: HQWYE582912DEC03

PATIENT
  Age: 37 Year
  Sex: Male
  Weight: 69.01 kg

DRUGS (21)
  1. MYLOTARG [Suspect]
     Indication: ACUTE MYELOID LEUKAEMIA
     Dosage: 10 MG 1X PER 1 DAY, INTRAVENOUS; 7 MG 1X PER 1 DAY, INTRAVENOUS
     Route: 042
     Dates: start: 20030923, end: 20030923
  2. MYLOTARG [Suspect]
     Indication: ACUTE MYELOID LEUKAEMIA
     Dosage: 10 MG 1X PER 1 DAY, INTRAVENOUS; 7 MG 1X PER 1 DAY, INTRAVENOUS
     Route: 042
     Dates: start: 20031001, end: 20031001
  3. PANTOPRAZOLE SODIUM [Concomitant]
  4. MULTIVITAMINS, PLAIN (MULTIVITAMINS, PLAIN) [Concomitant]
  5. THIAMINE HCL [Concomitant]
  6. FOLIC ACID [Concomitant]
  7. TRAZODONE HCL [Concomitant]
  8. NICOTINE [Concomitant]
  9. ACYCLOVIR [Concomitant]
  10. CLOTRIMAZOLE [Concomitant]
  11. MEPERIDINE HCL [Concomitant]
  12. ACETAMINOPHEN [Concomitant]
  13. VANCOMYCIN [Concomitant]
  14. PROMETHAZINE [Concomitant]
  15. METOCLOPRAMIDE [Concomitant]
  16. DIPHENHYDRAMINE HCL [Concomitant]
  17. POTASSIUM CHLORIDE [Concomitant]
  18. SENNA (SENNA) [Concomitant]
  19. LACTULOSE [Concomitant]
  20. MORPHINE SULFATE [Concomitant]
  21. GABAPENTIN [Concomitant]

REACTIONS (16)
  - ABDOMINAL DISTENSION [None]
  - ABDOMINAL PAIN UPPER [None]
  - ABDOMINAL RIGIDITY [None]
  - ASCITES [None]
  - BOWEL SOUNDS ABNORMAL [None]
  - FEBRILE NEUTROPENIA [None]
  - GALLBLADDER DISORDER [None]
  - HEPATOMEGALY [None]
  - INFUSION RELATED REACTION [None]
  - NAUSEA [None]
  - PLEURAL EFFUSION [None]
  - PULMONARY MASS [None]
  - RENAL FAILURE [None]
  - VENOOCCLUSIVE LIVER DISEASE [None]
  - VOMITING [None]
  - WHITE BLOOD CELL COUNT DECREASED [None]
